FAERS Safety Report 4472603-X (Version None)
Quarter: 2004Q4

REPORT INFORMATION
  Report Type: 
  Country: None (occurrence: None)
  Receive Date: 20041008
  Receipt Date: 20040920
  Transmission Date: 20050328
  Serious: Yes (Hospitalization)
  Sender: FDA-Public Use
  Company Number: FR_040904821

PATIENT
  Age: 46 Year
  Sex: Female

DRUGS (4)
  1. ZYPREXA [Suspect]
     Indication: AGITATION
     Dosage: 5 MG DAY IM
     Route: 030
     Dates: start: 20040827, end: 20040827
  2. MODOPAR [Concomitant]
  3. PARLODEL [Concomitant]
  4. SELEGILINE HCL [Concomitant]

REACTIONS (4)
  - BLOOD CREATINE PHOSPHOKINASE INCREASED [None]
  - BLOOD LACTATE DEHYDROGENASE INCREASED [None]
  - MYOGLOBINURIA [None]
  - SOMNOLENCE [None]
